FAERS Safety Report 9765172 (Version 1)
Quarter: 2013Q4

REPORT INFORMATION
  Report Type: Spontaneous
  Country: US (occurrence: US)
  Receive Date: 20131217
  Receipt Date: 20131217
  Transmission Date: 20140711
  Serious: No
  Sender: FDA-Public Use
  Company Number: US-GLAXOSMITHKLINE-A1000759A

PATIENT
  Age: 62 Year
  Sex: Male

DRUGS (6)
  1. VOTRIENT [Suspect]
     Indication: RENAL CELL CARCINOMA
     Dosage: 800MG PER DAY
     Route: 048
     Dates: start: 20121027
  2. LIPITOR [Concomitant]
  3. TOPROL [Concomitant]
  4. JANUVIA [Concomitant]
  5. VITAMIN D [Concomitant]
  6. BABY ASPIRIN [Concomitant]

REACTIONS (2)
  - Cough [Unknown]
  - Nasopharyngitis [Unknown]
